FAERS Safety Report 19247395 (Version 1)
Quarter: 2021Q2

REPORT INFORMATION
  Report Type: Spontaneous
  Country: US (occurrence: US)
  Receive Date: 20210512
  Receipt Date: 20210512
  Transmission Date: 20210717
  Serious: No
  Sender: FDA-Public Use
  Company Number: None

PATIENT
  Age: 70 Year
  Sex: Female

DRUGS (14)
  1. VITAMIN B12 [Concomitant]
     Active Substance: CYANOCOBALAMIN
  2. IMDUR [Concomitant]
     Active Substance: ISOSORBIDE MONONITRATE
  3. FLONASE [Concomitant]
     Active Substance: FLUTICASONE PROPIONATE
  4. POTASSIUM [Concomitant]
     Active Substance: POTASSIUM
  5. ANTIHISTAMINE [Concomitant]
     Active Substance: ANTIHISTAMINES NOS
  6. BEANO [Concomitant]
     Active Substance: ASPERGILLUS NIGER .ALPHA.-GALACTOSIDASE
  7. CARVEDILOL. [Concomitant]
     Active Substance: CARVEDILOL
  8. GLUCOSAMINE/CHONDROITIN [Concomitant]
  9. IMODIUM [Concomitant]
     Active Substance: LOPERAMIDE HYDROCHLORIDE
  10. HUMIRA [Suspect]
     Active Substance: ADALIMUMAB
     Indication: CROHN^S DISEASE
     Dosage: ?          QUANTITY:1 INJECTION(S);OTHER FREQUENCY:WEEKLY;?
     Route: 058
  11. HYDROCHLOROTHIAZIDE. [Concomitant]
     Active Substance: HYDROCHLOROTHIAZIDE
  12. CALCIUM [Concomitant]
     Active Substance: CALCIUM
  13. CANDESARTAN. [Concomitant]
     Active Substance: CANDESARTAN
  14. VITAMIN C [Concomitant]
     Active Substance: ASCORBIC ACID

REACTIONS (3)
  - Abdominal pain [None]
  - Small intestinal obstruction [None]
  - Breast pain [None]

NARRATIVE: CASE EVENT DATE: 20210507
